FAERS Safety Report 8157148-8 (Version None)
Quarter: 2012Q1

REPORT INFORMATION
  Report Type: 
  Country: None (occurrence: None)
  Receive Date: 20120222
  Receipt Date: 20120207
  Transmission Date: 20120608
  Serious: Yes (Hospitalization)
  Sender: FDA-Public Use
  Company Number: JP-ROCHE-1038028

PATIENT
  Age: 74 Year
  Sex: Female

DRUGS (1)
  1. HERCEPTIN [Suspect]
     Indication: PRODUCT USED FOR UNKNOWN INDICATION
     Dosage: DOSAGE IS UNCERTAIN.
     Route: 041
     Dates: start: 20111031

REACTIONS (7)
  - BREATH ODOUR [None]
  - DRY MOUTH [None]
  - HYPOAESTHESIA [None]
  - CHEST PAIN [None]
  - EPISTAXIS [None]
  - APTYALISM [None]
  - MUSCULOSKELETAL STIFFNESS [None]
